FAERS Safety Report 21146383 (Version 6)
Quarter: 2024Q2

REPORT INFORMATION
  Report Type: Spontaneous
  Country: US (occurrence: US)
  Receive Date: 20220729
  Receipt Date: 20240425
  Transmission Date: 20240716
  Serious: Yes (Hospitalization, Other)
  Sender: FDA-Public Use
  Company Number: US-SUN PHARMACEUTICAL INDUSTRIES LTD-2022R1-346730

PATIENT
  Age: 63 Year
  Sex: Male
  Weight: 102.5 kg

DRUGS (15)
  1. BUPROPION [Suspect]
     Active Substance: BUPROPION
     Indication: Depression
     Dosage: 150 MILLIGRAM, XL DAILY
     Route: 048
  2. DESVENLAFAXINE [Suspect]
     Active Substance: DESVENLAFAXINE
     Indication: Depression
     Dosage: 100 MILLIGRAM, XR DAILY
     Route: 048
  3. GABAPENTIN [Suspect]
     Active Substance: GABAPENTIN
     Indication: Neuropathy peripheral
     Dosage: 800 MILLIGRAM, QD (QHS)
     Route: 048
  4. TRAZODONE [Suspect]
     Active Substance: TRAZODONE HYDROCHLORIDE
     Indication: Depression
     Dosage: 50 MILLIGRAM, QD (EVERY NIGHT)
     Route: 048
  5. TRAZODONE [Suspect]
     Active Substance: TRAZODONE HYDROCHLORIDE
     Dosage: 50 MILLIGRAM, QD (EVERY NIGHT)
     Route: 048
  6. ZIPRASIDONE [Suspect]
     Active Substance: ZIPRASIDONE
     Indication: Depression
     Dosage: 40 MILLIGRAM, BID
     Route: 048
  7. BUSPIRONE [Suspect]
     Active Substance: BUSPIRONE HYDROCHLORIDE
     Indication: Depression
     Dosage: 30 MILLIGRAM, BID
     Route: 048
  8. HERBALS\MITRAGYNINE [Suspect]
     Active Substance: HERBALS\MITRAGYNINE
     Indication: Depression
     Dosage: UNK (SPRINKLED IN A DRINK 3 TIMES DAILY)
     Route: 065
  9. AMLODIPINE [Concomitant]
     Active Substance: AMLODIPINE BESYLATE
     Indication: Product used for unknown indication
     Dosage: 5 MILLIGRAM, DAILY
     Route: 048
  10. DICLOFENAC [Concomitant]
     Active Substance: DICLOFENAC
     Indication: Product used for unknown indication
     Dosage: 75 MILLIGRAM, BID DR
     Route: 048
  11. GLIMEPIRIDE [Concomitant]
     Active Substance: GLIMEPIRIDE
     Indication: Product used for unknown indication
     Dosage: 4 MILLIGRAM, DAILY
     Route: 048
  12. HYDROCHLOROTHIAZIDE [Concomitant]
     Active Substance: HYDROCHLOROTHIAZIDE
     Indication: Product used for unknown indication
     Dosage: 25 MILLIGRAM, DAILY
     Route: 048
  13. METFORMIN [Concomitant]
     Active Substance: METFORMIN HYDROCHLORIDE
     Indication: Product used for unknown indication
     Dosage: 500 MILLIGRAM QHS
     Route: 065
  14. OMEPRAZOLE [Concomitant]
     Active Substance: OMEPRAZOLE
     Indication: Product used for unknown indication
     Dosage: 40 MILLIGRAM, DAILY
     Route: 048
  15. TIZANIDINE [Concomitant]
     Active Substance: TIZANIDINE
     Indication: Product used for unknown indication
     Dosage: 6 MILLIGRAM Q8H PRN
     Route: 048

REACTIONS (1)
  - Serotonin syndrome [Recovered/Resolved]

NARRATIVE: CASE EVENT DATE: 20181104
